FAERS Safety Report 6129597-0 (Version None)
Quarter: 2009Q1

REPORT INFORMATION
  Report Type: 
  Country: None (occurrence: None)
  Receive Date: 20090323
  Receipt Date: 20090323
  Transmission Date: 20090719
  Serious: Yes (Other)
  Sender: FDA-Public Use
  Company Number: None

PATIENT
  Age: 3 Year
  Sex: Male
  Weight: 19.5047 kg

DRUGS (2)
  1. SINGULAIR [Suspect]
     Indication: ASTHMA
     Dosage: 1 TABLET DAILY PO
     Route: 048
     Dates: start: 20081104, end: 20090314
  2. SINGULAIR [Suspect]
     Indication: MULTIPLE ALLERGIES
     Dosage: 1 TABLET DAILY PO
     Route: 048
     Dates: start: 20081104, end: 20090314

REACTIONS (5)
  - AFFECTIVE DISORDER [None]
  - AGGRESSION [None]
  - AGITATION [None]
  - ANGER [None]
  - SCREAMING [None]
